FAERS Safety Report 5055239-1 (Version None)
Quarter: 2006Q3

REPORT INFORMATION
  Report Type: 
  Country: None (occurrence: None)
  Receive Date: 20060714
  Receipt Date: 20060706
  Transmission Date: 20061208
  Serious: Yes (Hospitalization, Other)
  Sender: FDA-Public Use
  Company Number: 2006074034

PATIENT
  Age: 34 Year
  Sex: Female

DRUGS (3)
  1. LYRICA [Suspect]
     Indication: PARTIAL SEIZURES
     Dosage: 150 MG (75 MG, 2 IN 1 D), ORAL
     Route: 048
     Dates: start: 20060410, end: 20060416
  2. TEGRETOL [Concomitant]
  3. KEPPRA [Concomitant]

REACTIONS (5)
  - BLOOD GLUCOSE INCREASED [None]
  - HAEMORRHAGE INTRACRANIAL [None]
  - INTRACRANIAL HAEMATOMA [None]
  - NAUSEA [None]
  - TACHYCARDIA [None]
